FAERS Safety Report 5068695-X (Version None)
Quarter: 2006Q3

REPORT INFORMATION
  Report Type: 
  Country: None (occurrence: None)
  Receive Date: 20060802
  Receipt Date: 20060216
  Transmission Date: 20061208
  Serious: No
  Sender: FDA-Public Use
  Company Number: US-BRISTOL-MYERS SQUIBB COMPANY-13286596

PATIENT
  Age: 79 Year
  Sex: Female
  Weight: 54 kg

DRUGS (4)
  1. COUMADIN [Suspect]
     Indication: PULMONARY HYPERTENSION
     Dosage: 1/2 TABLET (1.25 MG) DAILY IN THE EVENINGS
     Route: 048
     Dates: start: 20050101
  2. FOSAMAX [Concomitant]
     Dosage: DURATION: 2 YEARS
  3. LASIX [Concomitant]
     Dosage: DURATION: 2 YEARS
  4. TOPROL-XL [Concomitant]
     Dosage: DURATION: 2 YEARS

REACTIONS (1)
  - ANAEMIA [None]
